FAERS Safety Report 24666394 (Version 3)
Quarter: 2025Q1

REPORT INFORMATION
  Report Type: Report from Study
  Country: CN (occurrence: CN)
  Receive Date: 20241126
  Receipt Date: 20250110
  Transmission Date: 20250409
  Serious: Yes (Life-Threatening, Hospitalization, Other)
  Sender: NOVARTIS
  Company Number: CN-002147023-NVSC2024CN224470

PATIENT
  Age: 75 Year
  Sex: Female
  Weight: 60 kg

DRUGS (4)
  1. FEMARA [Suspect]
     Active Substance: LETROZOLE
     Indication: Breast cancer
     Dosage: 2.5 MG, QD
     Route: 048
     Dates: start: 20151211, end: 20241022
  2. PALBOCICLIB [Suspect]
     Active Substance: PALBOCICLIB
     Indication: Breast cancer
     Dosage: 125 MG, QD (D1-D21)
     Route: 048
     Dates: start: 20151211, end: 20241022
  3. VALSARTAN [Concomitant]
     Active Substance: VALSARTAN
     Indication: Product used for unknown indication
     Route: 048
     Dates: start: 2004
  4. METOPROLOL TARTRATE [Concomitant]
     Active Substance: METOPROLOL TARTRATE
     Indication: Product used for unknown indication
     Route: 048
     Dates: start: 2016

REACTIONS (17)
  - Thrombocytopenia [Recovering/Resolving]
  - Myelosuppression [Recovered/Resolved]
  - Disseminated intravascular coagulation [Not Recovered/Not Resolved]
  - Haemorrhage intracranial [Unknown]
  - Headache [Recovered/Resolved]
  - Dizziness [Recovered/Resolved]
  - Subdural haematoma [Unknown]
  - Basal ganglia haematoma [Unknown]
  - Subarachnoid haemorrhage [Unknown]
  - Subdural effusion [Unknown]
  - Neutrophil count decreased [Not Recovered/Not Resolved]
  - Thrombocytopenic purpura [Recovered/Resolved]
  - Breast cancer [Unknown]
  - Bone cancer [Unknown]
  - White blood cell count decreased [Unknown]
  - Anaemia [Not Recovered/Not Resolved]
  - Paranasal sinus inflammation [Unknown]

NARRATIVE: CASE EVENT DATE: 20241022
